FAERS Safety Report 23713157 (Version 1)
Quarter: 2024Q2

REPORT INFORMATION
  Report Type: Spontaneous
  Country: LB (occurrence: LB)
  Receive Date: 20240405
  Receipt Date: 20240405
  Transmission Date: 20240715
  Serious: Yes (Hospitalization)
  Sender: FDA-Public Use
  Company Number: LB-STERISCIENCE B.V.-2024-ST-000376

PATIENT
  Age: 37 Year
  Sex: Male

DRUGS (4)
  1. SODIUM BICARBONATE [Suspect]
     Active Substance: SODIUM BICARBONATE
     Indication: Metabolic acidosis
     Dosage: RECEIVED MORE THAN 50 VIALS
     Route: 065
  2. SALINE [Concomitant]
     Active Substance: SODIUM CHLORIDE
     Indication: Hypotension
     Dosage: RECEIVED BOLUS
     Route: 065
  3. EPINEPHRINE [Concomitant]
     Active Substance: EPINEPHRINE
     Indication: Hypotension
     Route: 065
  4. ACTIVATED CHARCOAL [Concomitant]
     Active Substance: ACTIVATED CHARCOAL
     Indication: Chemical poisoning
     Dosage: 1 GRAM PER KILOGRAM
     Route: 065

REACTIONS (1)
  - Drug ineffective [Unknown]
